FAERS Safety Report 9299397 (Version 3)
Quarter: 2014Q1

REPORT INFORMATION
  Report Type: Spontaneous
  Country: US (occurrence: US)
  Receive Date: 20130520
  Receipt Date: 20140227
  Transmission Date: 20141002
  Serious: Yes (Hospitalization)
  Sender: FDA-Public Use
  Company Number: US-B.I. PHARMACEUTICALS,INC./RIDGEFIELD-2013-BI-13948BP

PATIENT
  Age: 75 Year
  Sex: Female
  Weight: 79.38 kg

DRUGS (26)
  1. PRADAXA [Suspect]
     Indication: ATRIAL FIBRILLATION
     Dosage: 150 MG
     Route: 065
     Dates: start: 20111102, end: 20111120
  2. PLAVIX [Concomitant]
     Dosage: 75 MG
     Route: 048
  3. ALLOPURINOL [Concomitant]
     Dosage: 300 MG
     Route: 048
  4. AMBIEN [Concomitant]
     Dosage: 10 MG
     Route: 048
  5. BUMETANIDE [Concomitant]
     Dosage: 1 MG
     Route: 048
  6. BYSTOLIC [Concomitant]
     Dosage: 20 MG
     Route: 048
  7. CRESTOR [Concomitant]
     Dosage: 40 MG
     Route: 048
  8. DILTIAZEM [Concomitant]
     Dosage: 240 MG
     Route: 048
  9. ACETAMINOPHEN-HYDROCODONE [Concomitant]
     Route: 065
  10. LEVOXYL [Concomitant]
     Dosage: 25 MCG
     Route: 048
  11. MECLIZINE [Concomitant]
     Route: 048
  12. MULTAQ [Concomitant]
     Route: 065
  13. NEURONTIN [Concomitant]
     Dosage: 300 MG
     Route: 048
  14. NITROSTAT [Concomitant]
     Route: 060
  15. PANTOPRAZOLE [Concomitant]
     Dosage: 40 MG
     Route: 048
  16. FISH OIL [Concomitant]
     Route: 048
  17. PROCRIT [Concomitant]
     Route: 065
  18. TEKTURNA [Concomitant]
     Dosage: 300 MG
     Route: 048
  19. RANEXA [Concomitant]
     Dosage: 1000 MG
     Route: 048
  20. ASPIRIN [Concomitant]
     Dosage: 325 MG
     Route: 048
  21. PREMARIN [Concomitant]
     Dosage: 0.3 MG
     Route: 048
  22. REPLESTA [Concomitant]
     Route: 048
  23. VITAMIN B-12 [Concomitant]
     Dosage: 1000 MCG
     Route: 048
  24. MULTIVITAMIN [Concomitant]
     Route: 048
  25. INTEGRA F [Concomitant]
     Route: 048
  26. ZOLOFT [Concomitant]
     Dosage: 50 MG
     Route: 048

REACTIONS (2)
  - Gastrointestinal haemorrhage [Unknown]
  - Haemorrhagic anaemia [Unknown]
